FAERS Safety Report 23145586 (Version 2)
Quarter: 2023Q4

REPORT INFORMATION
  Report Type: Report from Study
  Country: US (occurrence: US)
  Receive Date: 20231103
  Receipt Date: 20231207
  Transmission Date: 20240110
  Serious: Yes (Other)
  Sender: FDA-Public Use
  Company Number: US-ALXN-A202309573AA

PATIENT
  Sex: Male
  Weight: 74 kg

DRUGS (3)
  1. ULTOMIRIS [Suspect]
     Active Substance: RAVULIZUMAB-CWVZ
     Indication: Myasthenia gravis
     Dosage: UNK
     Route: 065
  2. SOLIRIS [Suspect]
     Active Substance: ECULIZUMAB
     Indication: Myasthenia gravis
     Dosage: UNK
     Route: 065
     Dates: start: 20231122
  3. MESTINON [Suspect]
     Active Substance: PYRIDOSTIGMINE BROMIDE
     Indication: Diplopia
     Dosage: 12 UNK, QD
     Route: 065

REACTIONS (14)
  - Choking [Not Recovered/Not Resolved]
  - Optic neuritis [Not Recovered/Not Resolved]
  - Nasal disorder [Not Recovered/Not Resolved]
  - Dyspnoea [Not Recovered/Not Resolved]
  - Condition aggravated [Not Recovered/Not Resolved]
  - Drug ineffective [Unknown]
  - Diplopia [Not Recovered/Not Resolved]
  - Feeling abnormal [Unknown]
  - Eyelid ptosis [Not Recovered/Not Resolved]
  - Panic reaction [Unknown]
  - Dizziness [Unknown]
  - Gait disturbance [Unknown]
  - Fine motor skill dysfunction [Unknown]
  - Abdominal pain upper [Unknown]

NARRATIVE: CASE EVENT DATE: 20230926
